FAERS Safety Report 7691866 (Version 9)
Quarter: 2013Q4

REPORT INFORMATION
  Report Type: Report from Study
  Country: US (occurrence: US)
  Receive Date: 20101203
  Receipt Date: 20131121
  Transmission Date: 20140711
  Serious: Yes (Hospitalization, Other)
  Sender: FDA-Public Use
  Company Number: US-ELI_LILLY_AND_COMPANY-US201011006055

PATIENT
  Age: 43 Year
  Sex: Female
  Weight: 98.87 kg

DRUGS (14)
  1. TERIPARATIDE [Suspect]
     Indication: OSTEOPOROSIS
     Dosage: 20 UG, QD
     Route: 058
     Dates: start: 20100910, end: 20101002
  2. TERIPARATIDE [Suspect]
     Dosage: 20 UG, QD
     Route: 058
     Dates: start: 201201
  3. TERIPARATIDE [Suspect]
     Dosage: 20 UG, QD
     Route: 058
  4. CALCIUM [Concomitant]
  5. IRON [Concomitant]
  6. HUMALOG [Concomitant]
  7. LANTUS [Concomitant]
  8. TOPROL XL [Concomitant]
  9. PLAVIX [Concomitant]
  10. CYMBALTA [Concomitant]
  11. LASIX [Concomitant]
  12. LYRICA [Concomitant]
  13. NEXIUM [Concomitant]
  14. INSULIN [Concomitant]

REACTIONS (15)
  - Femur fracture [Recovered/Resolved]
  - Cellulitis [Unknown]
  - Fall [Recovered/Resolved]
  - Pelvic fracture [Recovering/Resolving]
  - Fractured sacrum [Recovering/Resolving]
  - Arthropathy [Recovering/Resolving]
  - Gastroenteritis viral [Recovering/Resolving]
  - Impaired gastric emptying [Recovered/Resolved]
  - Gastric disorder [Unknown]
  - Staphylococcal infection [Recovered/Resolved]
  - Local swelling [Not Recovered/Not Resolved]
  - Wound drainage [Not Recovered/Not Resolved]
  - Erythema [Not Recovered/Not Resolved]
  - Knee deformity [Unknown]
  - Arthralgia [Unknown]
